FAERS Safety Report 4286895-3 (Version None)
Quarter: 2004Q1

REPORT INFORMATION
  Report Type: 
  Country: None (occurrence: None)
  Receive Date: 20040121
  Receipt Date: 20030825
  Transmission Date: 20041129
  Serious: Yes (Hospitalization)
  Sender: FDA-Public Use
  Company Number: A03200301972

PATIENT
  Age: 79 Year
  Sex: Female
  Weight: 66.6788 kg

DRUGS (6)
  1. PLAVIX [Suspect]
     Indication: TRANSIENT ISCHAEMIC ATTACK
     Dosage: 75 MG QD - ORAL
     Route: 048
     Dates: start: 19981111
  2. BUMETANIDE [Concomitant]
  3. POTASSIUM [Concomitant]
  4. ESTROGENS CONJUGATED [Concomitant]
  5. CALCIUM CARBONATE [Concomitant]
  6. PARACETAMOL [Concomitant]

REACTIONS (1)
  - CEREBROVASCULAR ACCIDENT [None]
